FAERS Safety Report 8814101 (Version 1)
Quarter: 2012Q4

REPORT INFORMATION
  Report Type: Spontaneous
  Country: US (occurrence: None)
  Receive Date: 20120926
  Receipt Date: 20120926
  Transmission Date: 20130627
  Serious: Yes (Other)
  Sender: FDA-Public Use
  Company Number: None

PATIENT
  Sex: Female
  Weight: 51.71 kg

DRUGS (1)
  1. ESTRADERM [Suspect]
     Indication: MENOPAUSAL SYMPTOMS

REACTIONS (2)
  - Application site rash [None]
  - Product substitution issue [None]
